FAERS Safety Report 16628409 (Version 1)
Quarter: 2019Q3

REPORT INFORMATION
  Report Type: Spontaneous
  Country: US (occurrence: US)
  Receive Date: 20190724
  Receipt Date: 20190724
  Transmission Date: 20191004
  Serious: No
  Sender: FDA-Public Use
  Company Number: None

PATIENT
  Age: 19 Year
  Sex: Female
  Weight: 73.48 kg

DRUGS (1)
  1. NEXPLANON [Suspect]
     Active Substance: ETONOGESTREL

REACTIONS (7)
  - Implantation complication [None]
  - Incision site pain [None]
  - Feeling abnormal [None]
  - Inadequate analgesia [None]
  - Nerve injury [None]
  - Hypoaesthesia [None]
  - Complication of device removal [None]

NARRATIVE: CASE EVENT DATE: 20190317
